FAERS Safety Report 6761282-4 (Version None)
Quarter: 2010Q2

REPORT INFORMATION
  Report Type: 
  Country: None (occurrence: None)
  Receive Date: 20100608
  Receipt Date: 20100604
  Transmission Date: 20101027
  Serious: Yes (Other)
  Sender: FDA-Public Use
  Company Number: US-GILEAD-2010-0029599

PATIENT
  Age: 46 Year
  Sex: Female

DRUGS (5)
  1. CAYSTON [Suspect]
     Indication: CYSTIC FIBROSIS
     Route: 055
     Dates: start: 20050101
  2. PULMOZYME [Concomitant]
  3. ADVAIR DISKUS 100/50 [Concomitant]
  4. FLOVENT [Concomitant]
  5. SPIRIVA [Concomitant]

REACTIONS (1)
  - PULMONARY EMBOLISM [None]
